FAERS Safety Report 11515935 (Version 1)
Quarter: 2015Q3

REPORT INFORMATION
  Report Type: Spontaneous
  Country: US (occurrence: US)
  Receive Date: 20150916
  Receipt Date: 20150916
  Transmission Date: 20151125
  Serious: Yes (Disabling, Other)
  Sender: FDA-Public Use
  Company Number: US-BRISTOL-MYERS SQUIBB COMPANY-BMS-2015-060679

PATIENT
  Sex: Female

DRUGS (1)
  1. ABILIFY [Suspect]
     Active Substance: ARIPIPRAZOLE
     Indication: DEPRESSION
     Dosage: 15 MG, QD
     Route: 048

REACTIONS (8)
  - Off label use [Unknown]
  - Synovial cyst [Unknown]
  - Calcinosis [Unknown]
  - Weight increased [Unknown]
  - Underdose [Unknown]
  - Impaired gastric emptying [Unknown]
  - Knee arthroplasty [Unknown]
  - Surgery [Unknown]
